FAERS Safety Report 9242975 (Version 2)
Quarter: 2013Q2

REPORT INFORMATION
  Report Type: Spontaneous
  Country: IT (occurrence: IT)
  Receive Date: 20130420
  Receipt Date: 20130606
  Transmission Date: 20140414
  Serious: Yes (Other)
  Sender: FDA-Public Use
  Company Number: IT-009507513-1304ITA008725

PATIENT
  Age: 72 Year
  Sex: Male
  Weight: 70 kg

DRUGS (4)
  1. TRIMETON [Suspect]
     Indication: PREMEDICATION
     Dosage: 10 MG/1ML, CYCLICAL
     Route: 042
     Dates: start: 20130409
  2. MABTHERA [Suspect]
     Indication: LYMPHOCYTIC LEUKAEMIA
     Dosage: 638 MG, CYCLICAL
     Route: 042
     Dates: start: 20130409, end: 20130409
  3. SOLU-MEDROL [Concomitant]
     Indication: PREMEDICATION
     Dosage: 40 MG/ML, UNK
     Route: 042
     Dates: start: 20130409, end: 20130409
  4. EFFERALGAN [Concomitant]
     Indication: PREMEDICATION
     Dosage: 1000 MG
     Route: 048
     Dates: start: 20130409, end: 20130409

REACTIONS (5)
  - Bradycardia [Recovered/Resolved]
  - Loss of consciousness [Recovered/Resolved]
  - Flushing [Recovered/Resolved]
  - Back pain [Recovered/Resolved]
  - Hypotension [Recovered/Resolved]
